FAERS Safety Report 5629999-2 (Version None)
Quarter: 2008Q1

REPORT INFORMATION
  Report Type: 
  Country: None (occurrence: None)
  Receive Date: 20080218
  Receipt Date: 20080208
  Transmission Date: 20080703
  Serious: Yes (Hospitalization, Other)
  Sender: FDA-Public Use
  Company Number: PHHY2008JP01175

PATIENT
  Age: 49 Year
  Sex: Female
  Weight: 67 kg

DRUGS (9)
  1. CYCLOSPORINE [Suspect]
     Indication: SYSTEMIC LUPUS ERYTHEMATOSUS
     Dosage: 200 MG/DAY
     Dates: start: 20020101
  2. CYCLOSPORINE [Suspect]
     Dosage: 100 MG/DAY
     Dates: start: 20040101
  3. CYCLOSPORINE [Suspect]
     Dosage: 50 MG/DAY
     Dates: start: 20050101
  4. PREDNISOLONE [Suspect]
     Dosage: 5 MG/DAY
     Route: 048
  5. PREDNISOLONE [Suspect]
     Dosage: 40 MG/D
     Dates: start: 19951001
  6. PREDNISOLONE [Suspect]
     Dosage: 15 MG/D
  7. PREDNISOLONE [Suspect]
     Dosage: 30 MG/D
  8. PREDNISOLONE [Suspect]
     Dosage: 60 MG/D
  9. METHYLPREDNISOLONE [Suspect]
     Dosage: 1G/ DAY

REACTIONS (14)
  - CELL MARKER INCREASED [None]
  - COMPLEMENT FACTOR DECREASED [None]
  - CYTOMEGALOVIRUS ANTIBODY POSITIVE [None]
  - CYTOMEGALOVIRUS ANTIGEN POSITIVE [None]
  - FUNGAL DNA TEST POSITIVE [None]
  - INTERSTITIAL LUNG DISEASE [None]
  - MALAISE [None]
  - NASOPHARYNGITIS [None]
  - PERICARDIAL EFFUSION [None]
  - PNEUMONIA CYTOMEGALOVIRAL [None]
  - PULMONARY FUNCTION TEST ABNORMAL [None]
  - PYREXIA [None]
  - RESTRICTIVE PULMONARY DISEASE [None]
  - SYSTEMIC LUPUS ERYTHEMATOSUS [None]
